FAERS Safety Report 6766206-1 (Version None)
Quarter: 2010Q2

REPORT INFORMATION
  Report Type: 
  Country: None (occurrence: None)
  Receive Date: 20100611
  Receipt Date: 20100603
  Transmission Date: 20101027
  Serious: Yes (Other)
  Sender: FDA-Public Use
  Company Number: NO-ABBOTT-10P-122-0618396-00

PATIENT
  Sex: Male

DRUGS (2)
  1. HUMIRA [Suspect]
     Indication: CROHN'S DISEASE
     Route: 051
     Dates: start: 20081202, end: 20090920
  2. REMICADE [Suspect]
     Indication: CROHN'S DISEASE
     Dates: start: 20061019, end: 20081008

REACTIONS (1)
  - CHRONIC MYELOMONOCYTIC LEUKAEMIA [None]
